FAERS Safety Report 15789418 (Version 2)
Quarter: 2019Q1

REPORT INFORMATION
  Report Type: Spontaneous
  Country: US (occurrence: US)
  Receive Date: 20190104
  Receipt Date: 20190218
  Transmission Date: 20190417
  Serious: No
  Sender: FDA-Public Use
  Company Number: US-GLAXOSMITHKLINE-US2018230526

PATIENT
  Sex: Female

DRUGS (1)
  1. VENTOLIN HFA [Suspect]
     Active Substance: ALBUTEROL SULFATE
     Indication: RESPIRATION ABNORMAL
     Dosage: UNK
     Route: 048

REACTIONS (2)
  - Wrong technique in device usage process [Unknown]
  - Medical device discomfort [Unknown]
